FAERS Safety Report 10599611 (Version 21)
Quarter: 2015Q4

REPORT INFORMATION
  Report Type: Report from Study
  Country: US (occurrence: US)
  Receive Date: 20141121
  Receipt Date: 20151223
  Transmission Date: 20160304
  Serious: Yes (Hospitalization, Disabling)
  Sender: FDA-Public Use
  Company Number: US-B.I. PHARMACEUTICALS,INC./RIDGEFIELD-2014-BI-54000BI

PATIENT
  Age: 69 Year
  Sex: Male
  Weight: 96.9 kg

DRUGS (45)
  1. LANTUS [Concomitant]
     Active Substance: INSULIN GLARGINE
     Dosage: 18 U
     Route: 058
     Dates: start: 20150218
  2. LANTUS [Concomitant]
     Active Substance: INSULIN GLARGINE
     Dosage: 30 U
     Route: 058
     Dates: start: 20150219
  3. APIDRA [Concomitant]
     Active Substance: INSULIN GLULISINE
     Dosage: 3 U
     Route: 058
     Dates: start: 20150216
  4. NACL NORMAL SALINE [Concomitant]
     Dosage: 1000 ML
     Route: 042
     Dates: start: 20150215
  5. LINAGLIPTIN [Suspect]
     Active Substance: LINAGLIPTIN
     Dosage: 5 MG
     Route: 048
     Dates: end: 20150215
  6. LANTUS [Concomitant]
     Active Substance: INSULIN GLARGINE
     Dosage: 10 U
     Route: 058
     Dates: start: 20150216
  7. APIDRA [Concomitant]
     Active Substance: INSULIN GLULISINE
     Dosage: 10 U
     Route: 058
     Dates: start: 20150218
  8. ZOFRAN [Concomitant]
     Active Substance: ONDANSETRON HYDROCHLORIDE
     Indication: PROPHYLAXIS OF NAUSEA AND VOMITING
  9. DEXTROSE. [Concomitant]
     Active Substance: DEXTROSE
     Indication: FLUID REPLACEMENT
     Dosage: 25 ML
     Route: 042
     Dates: start: 20150215
  10. DEXTROSE. [Concomitant]
     Active Substance: DEXTROSE
     Dosage: 1000 ML
     Route: 042
     Dates: start: 20150215
  11. SODIUM BICARBONATE. [Concomitant]
     Active Substance: SODIUM BICARBONATE
     Indication: ELECTROLYTE IMBALANCE
     Dosage: 650 MG
     Route: 048
     Dates: start: 20150218, end: 20150220
  12. ACETAMINOPHEN. [Concomitant]
     Active Substance: ACETAMINOPHEN
     Indication: HEADACHE
     Dosage: DAILY DOSE: 325MG PRN
     Route: 048
     Dates: start: 20140717
  13. HYDRALAZIN [Concomitant]
     Indication: HYPERTENSION
     Dosage: 0.5 ML
     Route: 042
     Dates: start: 20150215
  14. ASPIRIN EC [Concomitant]
     Active Substance: ASPIRIN
     Indication: CARDIOVASCULAR EVENT PROPHYLAXIS
     Dosage: 81 MG
     Route: 048
     Dates: start: 20150420
  15. FOLIC ACID. [Concomitant]
     Active Substance: FOLIC ACID
     Indication: PROPHYLAXIS
     Dosage: 1 MG
     Route: 048
     Dates: start: 20150420
  16. APIDRA [Concomitant]
     Active Substance: INSULIN GLULISINE
     Dosage: 12 U
     Route: 058
     Dates: start: 20150219
  17. APIDRA [Concomitant]
     Active Substance: INSULIN GLULISINE
     Dosage: 8 U
     Route: 058
     Dates: start: 20150215
  18. NACL NORMAL SALINE [Concomitant]
     Indication: FLUID REPLACEMENT
     Dosage: 1000 ML
     Route: 042
     Dates: start: 20150217, end: 20150220
  19. LANTUS [Concomitant]
     Active Substance: INSULIN GLARGINE
     Dosage: 5 U
     Route: 058
     Dates: start: 20150219, end: 20150219
  20. LANTUS [Concomitant]
     Active Substance: INSULIN GLARGINE
     Dosage: 15 U
     Route: 058
     Dates: start: 20150213
  21. APIDRA [Concomitant]
     Active Substance: INSULIN GLULISINE
     Dosage: 9 U
     Route: 058
     Dates: start: 20150217
  22. APIDRA [Concomitant]
     Active Substance: INSULIN GLULISINE
     Dosage: 4 U
     Route: 058
     Dates: start: 20150220
  23. GLUCAGON. [Concomitant]
     Active Substance: GLUCAGON
     Indication: HYPOGLYCAEMIA
     Dosage: 1 ML
     Route: 030
     Dates: start: 20150215
  24. LINAGLIPTIN [Suspect]
     Active Substance: LINAGLIPTIN
     Dosage: 5 MG
     Route: 048
     Dates: start: 20150220
  25. LANTUS [Concomitant]
     Active Substance: INSULIN GLARGINE
     Indication: TYPE 2 DIABETES MELLITUS
     Dosage: 40 U
     Route: 058
     Dates: start: 20140717
  26. LANTUS [Concomitant]
     Active Substance: INSULIN GLARGINE
     Dosage: 20 U
     Route: 058
     Dates: start: 20150213
  27. APIDRA [Concomitant]
     Active Substance: INSULIN GLULISINE
     Dosage: 6 U
     Route: 058
     Dates: start: 20150219
  28. APIDRA [Concomitant]
     Active Substance: INSULIN GLULISINE
     Dosage: 2 U
     Route: 058
     Dates: start: 20150220
  29. APIDRA [Concomitant]
     Active Substance: INSULIN GLULISINE
     Dosage: 6 U
     Route: 058
     Dates: start: 20150220
  30. ACETAMINOPHEN. [Concomitant]
     Active Substance: ACETAMINOPHEN
     Indication: PYREXIA
     Dosage: 650 MG
     Route: 048
     Dates: start: 20150218, end: 20150220
  31. GLUCAGON. [Concomitant]
     Active Substance: GLUCAGON
     Dosage: 30 G
     Route: 048
     Dates: start: 20150215
  32. LINAGLIPTIN [Suspect]
     Active Substance: LINAGLIPTIN
     Indication: TYPE 2 DIABETES MELLITUS
     Dosage: 5 MG
     Route: 048
     Dates: start: 20141103, end: 20141106
  33. AMLODIPINE [Concomitant]
     Active Substance: AMLODIPINE BESYLATE
     Dosage: 5 MG
     Route: 048
     Dates: start: 20150216
  34. APIDRA [Concomitant]
     Active Substance: INSULIN GLULISINE
     Indication: TYPE 2 DIABETES MELLITUS
     Dosage: 2 U
     Route: 058
     Dates: start: 20150218
  35. ACETAMINOPHEN. [Concomitant]
     Active Substance: ACETAMINOPHEN
     Indication: ARTHRITIS
     Dosage: 650 MG
     Route: 048
     Dates: start: 20150215
  36. AMLODIPINE [Concomitant]
     Active Substance: AMLODIPINE BESYLATE
     Indication: HYPERTENSION
     Dosage: 10 MG
     Route: 048
     Dates: start: 20111003
  37. APIDRA [Concomitant]
     Active Substance: INSULIN GLULISINE
     Dosage: 6 U
     Route: 058
     Dates: start: 20150217
  38. APIDRA [Concomitant]
     Active Substance: INSULIN GLULISINE
     Dosage: 15 U
     Route: 058
     Dates: start: 20150217
  39. ZOFRAN [Concomitant]
     Active Substance: ONDANSETRON HYDROCHLORIDE
     Indication: PROPHYLAXIS OF NAUSEA AND VOMITING
     Dosage: 4 MG
     Route: 042
     Dates: start: 20150215
  40. DEXTROSE. [Concomitant]
     Active Substance: DEXTROSE
     Indication: HYPOGLYCAEMIA
     Dosage: 50 ML
     Route: 042
     Dates: start: 20150215
  41. PROVASTATIN [Concomitant]
     Indication: HYPERLIPIDAEMIA
     Dosage: 10 MG
     Route: 048
     Dates: start: 20150420
  42. AMLODIPINE [Concomitant]
     Active Substance: AMLODIPINE BESYLATE
     Dosage: 10 MG
     Route: 048
     Dates: start: 20150218
  43. APIDRA [Concomitant]
     Active Substance: INSULIN GLULISINE
     Dosage: 18 U
     Route: 058
     Dates: start: 20150216
  44. TAMIFLU [Concomitant]
     Active Substance: OSELTAMIVIR PHOSPHATE
     Indication: INFLUENZA
     Dosage: 30 MG
     Route: 048
     Dates: start: 20150215, end: 20150220
  45. LISINOPRIL. [Concomitant]
     Active Substance: LISINOPRIL
     Indication: HYPERTENSION
     Dosage: 10 MG
     Route: 048
     Dates: start: 20150216, end: 20150220

REACTIONS (4)
  - Chronic kidney disease [Not Recovered/Not Resolved]
  - Acute kidney injury [Recovered/Resolved]
  - Dyspnoea [Recovered/Resolved]
  - Acute kidney injury [Recovered/Resolved]

NARRATIVE: CASE EVENT DATE: 20141106
